FAERS Safety Report 9109366 (Version 3)
Quarter: 2013Q2

REPORT INFORMATION
  Report Type: Spontaneous
  Country: JP (occurrence: JP)
  Receive Date: 20130222
  Receipt Date: 20130424
  Transmission Date: 20140414
  Serious: Yes (Disabling, Other)
  Sender: FDA-Public Use
  Company Number: JP-AMGEN-JPNSP2013012383

PATIENT
  Age: 83 Year
  Sex: Male
  Weight: 78 kg

DRUGS (15)
  1. RANMARK [Suspect]
     Indication: METASTASES TO BONE
     Dosage: 120 MG, SINGLE
     Route: 058
     Dates: start: 20120804, end: 20121219
  2. RANMARK [Suspect]
     Indication: BONE LESION
  3. ZOMETA [Concomitant]
     Indication: BONE DISORDER
     Dosage: UNKNOWN
     Route: 065
     Dates: start: 20100804
  4. ZOMETA [Concomitant]
     Indication: METASTASES TO BONE
     Route: 042
     Dates: start: 20100804, end: 20120516
  5. LEUPLIN [Concomitant]
     Indication: PROSTATE CANCER
     Route: 058
     Dates: start: 20100707
  6. FLIVAS [Concomitant]
     Indication: BENIGN PROSTATIC HYPERPLASIA
     Route: 048
     Dates: start: 20100707
  7. TRAMAL [Concomitant]
     Indication: CANCER PAIN
     Route: 048
     Dates: start: 20120516
  8. ASPARA-CA [Concomitant]
     Indication: OSTEOPOROSIS
     Route: 048
     Dates: start: 20120516
  9. EDIROL [Concomitant]
     Indication: OSTEOPOROSIS
     Route: 048
     Dates: start: 20121024
  10. MAGNESIUM OXIDE [Concomitant]
     Indication: CONSTIPATION
     Route: 048
     Dates: start: 20130116
  11. LEUPLIN SR [Concomitant]
     Indication: PROSTATE CANCER
     Route: 058
     Dates: start: 20100707
  12. FLIVAS OD [Concomitant]
     Indication: BENIGN PROSTATIC HYPERPLASIA
     Route: 048
     Dates: start: 20100707
  13. EDIROL (ELDECALCITOL) [Concomitant]
     Indication: OSTEOPOROSIS
     Route: 048
     Dates: start: 20121024
  14. DOCETAXEL [Concomitant]
     Indication: PROSTATE CANCER
     Route: 041
     Dates: start: 20120717, end: 20121219
  15. KLARICID [Concomitant]
     Route: 048

REACTIONS (2)
  - Osteonecrosis of jaw [Unknown]
  - Sinusitis [Unknown]
